FAERS Safety Report 23522683 (Version 1)
Quarter: 2024Q1

REPORT INFORMATION
  Report Type: Spontaneous
  Country: US (occurrence: None)
  Receive Date: 20240213
  Receipt Date: 20240213
  Transmission Date: 20240409
  Serious: No
  Sender: FDA-Public Use
  Company Number: None

PATIENT
  Age: 40 Year
  Sex: Female
  Weight: 52.8 kg

DRUGS (2)
  1. OCREVUS [Suspect]
     Active Substance: OCRELIZUMAB
     Indication: Multiple sclerosis
     Dosage: OTHER FREQUENCY : Q 6 MONTHS;?
     Route: 042
     Dates: start: 20240105
  2. NUVIGIL [Suspect]
     Active Substance: ARMODAFINIL

REACTIONS (10)
  - Nausea [None]
  - Nystagmus [None]
  - Heart rate increased [None]
  - Abdominal pain [None]
  - Feeling hot [None]
  - Illness [None]
  - Mobility decreased [None]
  - Paraesthesia [None]
  - Diarrhoea [None]
  - Muscle contractions involuntary [None]
